FAERS Safety Report 8217579-4 (Version None)
Quarter: 2012Q1

REPORT INFORMATION
  Report Type: 
  Country: None (occurrence: None)
  Receive Date: 20120319
  Receipt Date: 20120319
  Transmission Date: 20120608
  Serious: Yes (Other)
  Sender: FDA-Public Use
  Company Number: None

PATIENT
  Age: 72 Year
  Sex: Male
  Weight: 77.11 kg

DRUGS (2)
  1. PROPOFOL [Suspect]
     Indication: COLONOSCOPY
     Dosage: UNKNOWN
     Route: 042
     Dates: start: 20120312, end: 20120312
  2. PROPOFOL [Suspect]
     Indication: SEDATIVE THERAPY
     Dosage: UNKNOWN
     Route: 042
     Dates: start: 20120312, end: 20120312

REACTIONS (3)
  - COUGH [None]
  - DYSPHAGIA [None]
  - OROPHARYNGEAL PAIN [None]
